FAERS Safety Report 12263117 (Version 1)
Quarter: 2016Q2

REPORT INFORMATION
  Report Type: Spontaneous
  Country: NL (occurrence: NL)
  Receive Date: 20160413
  Receipt Date: 20160413
  Transmission Date: 20160815
  Serious: Yes (Other)
  Sender: FDA-Public Use
  Company Number: NL-ROCHE-1740605

PATIENT
  Sex: Female

DRUGS (2)
  1. XOLAIR [Suspect]
     Active Substance: OMALIZUMAB
     Indication: PRODUCT USED FOR UNKNOWN INDICATION
     Route: 065
  2. ECHINAFORCE [Concomitant]

REACTIONS (7)
  - Malaise [Unknown]
  - Productive cough [Unknown]
  - Lung disorder [Unknown]
  - Nasopharyngitis [Unknown]
  - Pneumonia [Unknown]
  - Fatigue [Unknown]
  - Phobia [Unknown]

NARRATIVE: CASE EVENT DATE: 201601
